FAERS Safety Report 6491348-8 (Version None)
Quarter: 2009Q4

REPORT INFORMATION
  Report Type: 
  Country: None (occurrence: None)
  Receive Date: 20091211
  Receipt Date: 20091201
  Transmission Date: 20100525
  Serious: Yes (Other)
  Sender: FDA-Public Use
  Company Number: US-PFIZER INC-2009308651

PATIENT
  Sex: Female
  Weight: 77.1 kg

DRUGS (1)
  1. ZOLOFT [Suspect]
     Indication: DEPRESSION
     Dosage: 200 MG, UNK
     Route: 048

REACTIONS (3)
  - DEPRESSED MOOD [None]
  - FEMUR FRACTURE [None]
  - HYSTERECTOMY [None]
